FAERS Safety Report 5645151-9 (Version None)
Quarter: 2008Q1

REPORT INFORMATION
  Report Type: 
  Country: None (occurrence: None)
  Receive Date: 20080229
  Receipt Date: 20080225
  Transmission Date: 20080703
  Serious: Yes (Life-Threatening)
  Sender: FDA-Public Use
  Company Number: DE-AVENTIS-200810552DE

PATIENT
  Age: 76 Year
  Sex: Female

DRUGS (26)
  1. ENOXAPARIN SODIUM [Suspect]
     Indication: THROMBOSIS PROPHYLAXIS
     Route: 058
     Dates: start: 20041007, end: 20041026
  2. RANITIDINE HCL [Suspect]
     Route: 048
     Dates: start: 20040928, end: 20041026
  3. PHENHYDAN                          /00017401/ [Suspect]
     Route: 048
     Dates: start: 20040930, end: 20041025
  4. BELOC-ZOK [Suspect]
     Indication: HYPERTENSION
     Dosage: DOSE: 1 TABLET IN THE MORNING, 1/2 TABLET IN THE EVENING
     Route: 048
     Dates: start: 20041005, end: 20041026
  5. BENALAPRIL [Suspect]
     Indication: HYPERTENSION
     Route: 048
     Dates: start: 20041005, end: 20041026
  6. ASPIRIN [Suspect]
     Indication: THROMBOSIS PROPHYLAXIS
     Route: 048
     Dates: start: 20041005, end: 20041026
  7. NORVASC [Suspect]
     Indication: HYPERTENSION
     Route: 048
     Dates: start: 20041006, end: 20041026
  8. HALDOL [Suspect]
     Indication: AGITATION
     Dosage: DOSE: 1 AMPOULE
     Route: 042
     Dates: start: 20041010, end: 20041010
  9. HALDOL [Suspect]
     Route: 048
     Dates: start: 20041010, end: 20041025
  10. LORAZEPAM [Suspect]
     Indication: AGITATION
     Route: 042
     Dates: start: 20041010, end: 20041010
  11. LORAZEPAM [Suspect]
     Route: 048
     Dates: start: 20041011, end: 20041027
  12. MOXONIDIN [Concomitant]
     Indication: HYPERTENSION
     Route: 048
     Dates: start: 20040922, end: 20041005
  13. AMLODIPINE [Concomitant]
     Indication: HYPERTENSION
     Route: 048
     Dates: start: 20040922, end: 20041005
  14. TORSEMIDE [Concomitant]
     Indication: HYPERTENSION
     Route: 048
     Dates: start: 20040922, end: 20041007
  15. DIPIDOLOR [Concomitant]
     Indication: PAIN
     Route: 042
     Dates: start: 20041005, end: 20041005
  16. SAB SIMPLEX                        /00159501/ [Concomitant]
     Route: 048
     Dates: start: 20041005, end: 20041005
  17. ADALAT [Concomitant]
     Indication: HYPERTENSION
     Route: 048
     Dates: start: 20041005, end: 20041006
  18. MERONEM                            /01250501/ [Concomitant]
     Route: 042
     Dates: start: 20041005, end: 20041010
  19. ACC BRAUSE [Concomitant]
     Route: 048
     Dates: start: 20041005, end: 20041013
  20. KALINOR                            /00031402/ [Concomitant]
     Indication: HYPOKALAEMIA
     Dosage: DOSE: 1 TABLET
     Route: 048
     Dates: start: 20041005, end: 20041026
  21. REKAWAN [Concomitant]
     Dosage: DOSE: 2X2 REKAWAN
     Route: 048
     Dates: start: 20041007, end: 20041010
  22. NATRIUMCHLORID [Concomitant]
     Dosage: DOSE: 3X2 CAPSULES
     Route: 048
     Dates: start: 20041021, end: 20041026
  23. VALPROATE SODIUM [Concomitant]
     Route: 048
     Dates: start: 20041025, end: 20041026
  24. GASTROSIL                          /00041901/ [Concomitant]
     Indication: NAUSEA
     Route: 048
     Dates: start: 20041025, end: 20041026
  25. REMERGIL [Concomitant]
     Indication: AGITATION
     Route: 048
     Dates: start: 20041025
  26. FENISTIL [Concomitant]
     Indication: PRURITUS
     Route: 048
     Dates: start: 20041026, end: 20041026

REACTIONS (13)
  - BLISTER [None]
  - ERYTHEMA [None]
  - GENITAL BURNING SENSATION [None]
  - LIP EROSION [None]
  - NIKOLSKY'S SIGN [None]
  - OCULAR HYPERAEMIA [None]
  - ORAL MUCOSA EROSION [None]
  - PAIN OF SKIN [None]
  - PRURITUS [None]
  - PYREXIA [None]
  - RASH MACULAR [None]
  - SKIN REACTION [None]
  - TOXIC EPIDERMAL NECROLYSIS [None]
